FAERS Safety Report 5069520-3 (Version None)
Quarter: 2006Q3

REPORT INFORMATION
  Report Type: 
  Country: None (occurrence: None)
  Receive Date: 20060803
  Receipt Date: 20060719
  Transmission Date: 20061208
  Serious: Yes (Other)
  Sender: FDA-Public Use
  Company Number: ZA-ROCHE-456099

PATIENT
  Age: 16 Year
  Sex: Male
  Weight: 70 kg

DRUGS (2)
  1. ACCUTANE [Suspect]
     Indication: ACNE
     Route: 048
     Dates: start: 20050701, end: 20051215
  2. ACCUTANE [Suspect]
     Route: 048
     Dates: start: 20060115

REACTIONS (1)
  - HYPERINSULINAEMIA [None]
